FAERS Safety Report 8070716-7 (Version None)
Quarter: 2012Q1

REPORT INFORMATION
  Report Type: 
  Country: None (occurrence: None)
  Receive Date: 20120125
  Receipt Date: 20120123
  Transmission Date: 20120608
  Serious: Yes (Death)
  Sender: FDA-Public Use
  Company Number: PHHY2012NL005649

PATIENT
  Sex: Female

DRUGS (3)
  1. ZOMETA [Suspect]
     Dosage: 4 MG/100/28 DAYS
     Route: 042
     Dates: start: 20120102
  2. ZOMETA [Suspect]
     Indication: BREAST CANCER METASTATIC
     Dosage: 4 MG,/100 ML/ 28 DAYS
     Route: 042
     Dates: start: 20101011
  3. ZOMETA [Suspect]
     Dosage: 4 MG,/100ML/28 DAYS
     Route: 042
     Dates: start: 20111202

REACTIONS (1)
  - SUDDEN DEATH [None]
